APPROVED DRUG PRODUCT: ZIPRASIDONE HYDROCHLORIDE
Active Ingredient: ZIPRASIDONE HYDROCHLORIDE
Strength: EQ 60MG BASE
Dosage Form/Route: CAPSULE;ORAL
Application: A077561 | Product #003 | TE Code: AB
Applicant: APOTEX INC
Approved: Mar 2, 2012 | RLD: No | RS: No | Type: RX